FAERS Safety Report 7292451-5 (Version None)
Quarter: 2011Q1

REPORT INFORMATION
  Report Type: 
  Country: None (occurrence: None)
  Receive Date: 20110215
  Receipt Date: 20110208
  Transmission Date: 20110831
  Serious: Yes (Other)
  Sender: FDA-Public Use
  Company Number: FI-PFIZER INC-2010171011

PATIENT
  Age: 79 Year
  Sex: Female

DRUGS (4)
  1. MAREVAN ^ORION^ [Concomitant]
     Dosage: UNK
  2. SELOKEN [Concomitant]
     Dosage: 95 MG, UNK
  3. COVERSYL [Concomitant]
     Dosage: 10 MG, UNK
  4. REVATIO [Suspect]
     Indication: PULMONARY HYPERTENSION
     Dosage: 20 MG, 3X/DAY
     Route: 048
     Dates: start: 20101126, end: 20101213

REACTIONS (1)
  - DIPLOPIA [None]
